FAERS Safety Report 8412151-5 (Version None)
Quarter: 2012Q2

REPORT INFORMATION
  Report Type: 
  Country: None (occurrence: None)
  Receive Date: 20120605
  Receipt Date: 20120509
  Transmission Date: 20120825
  Serious: No
  Sender: FDA-Public Use
  Company Number: US-AMGEN-USASP2012027351

PATIENT
  Age: 49 Year
  Sex: Female

DRUGS (2)
  1. ENBREL [Suspect]
     Indication: PSORIATIC ARTHROPATHY
     Dosage: 50 MG, QWK
     Route: 058
     Dates: start: 20120426, end: 20120427
  2. ENBREL [Suspect]
     Indication: PSORIASIS

REACTIONS (6)
  - ABDOMINAL DISTENSION [None]
  - COUGH [None]
  - INJECTION SITE HAEMATOMA [None]
  - RHINORRHOEA [None]
  - NASOPHARYNGITIS [None]
  - PSORIATIC ARTHROPATHY [None]
